FAERS Safety Report 19725424 (Version 2)
Quarter: 2022Q1

REPORT INFORMATION
  Report Type: Spontaneous
  Country: US (occurrence: US)
  Receive Date: 20210820
  Receipt Date: 20220218
  Transmission Date: 20220423
  Serious: No
  Sender: FDA-Public Use
  Company Number: US-GILEAD-2021-0544288

PATIENT
  Age: 54 Year
  Sex: Female
  Weight: 74.83 kg

DRUGS (9)
  1. ATRIPLA [Suspect]
     Active Substance: EFAVIRENZ\EMTRICITABINE\TENOFOVIR DISOPROXIL FUMARATE
     Indication: HIV infection
     Dosage: UNK
     Route: 065
     Dates: start: 201201, end: 201809
  2. BIKTARVY [Concomitant]
     Active Substance: BICTEGRAVIR SODIUM\EMTRICITABINE\TENOFOVIR ALAFENAMIDE FUMARATE
  3. ESTRADIOL [Concomitant]
     Active Substance: ESTRADIOL
  4. MELOXICAM [Concomitant]
     Active Substance: MELOXICAM
  5. MELATONIN [Concomitant]
     Active Substance: MELATONIN
  6. FISH OIL [Concomitant]
     Active Substance: FISH OIL
  7. HYDROCHLOROTHIAZIDE [Concomitant]
     Active Substance: HYDROCHLOROTHIAZIDE
  8. FLUCONAZOLE [Concomitant]
     Active Substance: FLUCONAZOLE
  9. AZULFIDINE [Concomitant]
     Active Substance: SULFASALAZINE

REACTIONS (7)
  - Osteopenia [Not Recovered/Not Resolved]
  - Bone density decreased [Unknown]
  - Pain [Not Recovered/Not Resolved]
  - Emotional distress [Not Recovered/Not Resolved]
  - Anhedonia [Not Recovered/Not Resolved]
  - Anxiety [Not Recovered/Not Resolved]
  - Mobility decreased [Unknown]

NARRATIVE: CASE EVENT DATE: 20180101
